FAERS Safety Report 23448155 (Version 9)
Quarter: 2025Q1

REPORT INFORMATION
  Report Type: Other
  Country: US (occurrence: US)
  Receive Date: 20240126
  Receipt Date: 20250321
  Transmission Date: 20250409
  Serious: No
  Sender: TRAVERE THERAPEUTICS
  Company Number: US-TRAVERE-2023TVT00877

PATIENT
  Age: 52 Year
  Sex: Female

DRUGS (12)
  1. FILSPARI [Suspect]
     Active Substance: SPARSENTAN
     Indication: IgA nephropathy
     Route: 048
     Dates: start: 20231114
  2. FILSPARI [Suspect]
     Active Substance: SPARSENTAN
     Indication: Chronic kidney disease
     Dosage: 200MG TABLETS TAKE 2 TABS DAILY
     Route: 048
     Dates: end: 202401
  3. FILSPARI [Suspect]
     Active Substance: SPARSENTAN
     Route: 048
     Dates: start: 202403, end: 202405
  4. GLYXAMBI [Suspect]
     Active Substance: EMPAGLIFLOZIN\LINAGLIPTIN
  5. AMOXICILLIN [Concomitant]
     Active Substance: AMOXICILLIN
  6. NORETHINDRONE [Concomitant]
     Active Substance: NORETHINDRONE
  7. DEPO-PROVERA [Concomitant]
     Active Substance: MEDROXYPROGESTERONE ACETATE
  8. ATORVASTATIN [Concomitant]
     Active Substance: ATORVASTATIN
  9. JARDIANCE [Concomitant]
     Active Substance: EMPAGLIFLOZIN
  10. CLARITIN [Concomitant]
     Active Substance: LORATADINE
  11. CYANOCOBALAMIN\FOLIC ACID\PYRIDOXINE HYDROCHLORIDE [Concomitant]
     Active Substance: CYANOCOBALAMIN\FOLIC ACID\PYRIDOXINE HYDROCHLORIDE
  12. GLIPIZIDE [Concomitant]
     Active Substance: GLIPIZIDE

REACTIONS (19)
  - Asthenia [Unknown]
  - Dizziness [None]
  - Muscle tightness [Unknown]
  - Feeling abnormal [Unknown]
  - Product dose omission in error [Unknown]
  - COVID-19 [Unknown]
  - Ear infection [Unknown]
  - Hyperhidrosis [Unknown]
  - Hypotension [None]
  - Fatigue [Unknown]
  - Heart rate increased [Unknown]
  - Depression [Unknown]
  - Blood pressure increased [Recovered/Resolved]
  - Arthralgia [Unknown]
  - Malaise [Unknown]
  - Incorrect dose administered [Unknown]
  - Chest discomfort [Unknown]
  - Limb discomfort [Unknown]
  - Tremor [None]
